FAERS Safety Report 13939109 (Version 2)
Quarter: 2017Q3

REPORT INFORMATION
  Report Type: Spontaneous
  Country: PL (occurrence: PL)
  Receive Date: 20170906
  Receipt Date: 20170912
  Transmission Date: 20171127
  Serious: Yes (Other)
  Sender: FDA-Public Use
  Company Number: PL-ROCHE-1988847

PATIENT
  Age: 32 Year
  Sex: Female
  Weight: 40.5 kg

DRUGS (1)
  1. ROACTEMRA [Suspect]
     Active Substance: TOCILIZUMAB
     Indication: JUVENILE IDIOPATHIC ARTHRITIS
     Dosage: DOSE: 4 AMPOULES OF 80 MG; TOTAL DOSE: 320 MG
     Route: 065
     Dates: start: 20160201

REACTIONS (2)
  - Tachycardia [Recovered/Resolved]
  - Infusion related reaction [Recovered/Resolved]

NARRATIVE: CASE EVENT DATE: 20160201
